FAERS Safety Report 6399610-4 (Version None)
Quarter: 2009Q4

REPORT INFORMATION
  Report Type: 
  Country: None (occurrence: None)
  Receive Date: 20091014
  Receipt Date: 20091009
  Transmission Date: 20100525
  Serious: Yes (Hospitalization)
  Sender: FDA-Public Use
  Company Number: FR-WYE-G04584309

PATIENT
  Sex: Male

DRUGS (2)
  1. ADVIL [Suspect]
     Indication: ERYSIPELAS
     Dosage: OVERDOSE AMOUNT : 8 TABLETS TOTAL DAILY
     Route: 048
     Dates: start: 20090911, end: 20090913
  2. ADVIL [Suspect]
     Indication: PAIN

REACTIONS (8)
  - CONDITION AGGRAVATED [None]
  - DERMATITIS BULLOUS [None]
  - ERYSIPELAS [None]
  - INFLAMMATION [None]
  - LEUKOCYTOSIS [None]
  - OVERDOSE [None]
  - PURPURA [None]
  - SKIN EXFOLIATION [None]
